FAERS Safety Report 5014301-X (Version None)
Quarter: 2006Q2

REPORT INFORMATION
  Report Type: 
  Country: None (occurrence: None)
  Receive Date: 20060414
  Receipt Date: 20051220
  Transmission Date: 20061013
  Serious: No
  Sender: FDA-Public Use
  Company Number: 2005SP003930

PATIENT
  Age: 58 Year
  Sex: Male
  Weight: 95.2554 kg

DRUGS (2)
  1. LUNESTA [Suspect]
     Dosage: 4.5 MG;HS;ORAL
     Route: 048
     Dates: start: 20050101, end: 20050101
  2. METOPROLOL TARTRATE [Concomitant]

REACTIONS (1)
  - DYSGEUSIA [None]
